FAERS Safety Report 5788855-X (Version None)
Quarter: 2008Q2

REPORT INFORMATION
  Report Type: 
  Country: None (occurrence: None)
  Receive Date: 20080626
  Receipt Date: 20080618
  Transmission Date: 20081010
  Serious: Yes (Hospitalization)
  Sender: FDA-Public Use
  Company Number: SA-WATSON-2008-03708

PATIENT
  Age: 20 Hour
  Sex: Female

DRUGS (1)
  1. DICLOFENAC (WATSON LABORATORIES) [Suspect]
     Indication: PAIN
     Dosage: 50 MG, TID
     Route: 048

REACTIONS (4)
  - DUCTUS ARTERIOSUS PREMATURE CLOSURE [None]
  - MATERNAL DRUGS AFFECTING FOETUS [None]
  - NEONATAL DISORDER [None]
  - PULMONARY HYPERTENSION [None]
